FAERS Safety Report 17657482 (Version 1)
Quarter: 2020Q2

REPORT INFORMATION
  Report Type: Spontaneous
  Country: US (occurrence: US)
  Receive Date: 20200410
  Receipt Date: 20200410
  Transmission Date: 20200713
  Serious: Yes (Other)
  Sender: FDA-Public Use
  Company Number: US-ALLERGAN-2014395US

PATIENT
  Sex: Female

DRUGS (2)
  1. REFRESH TEARS [Suspect]
     Active Substance: CARBOXYMETHYLCELLULOSE SODIUM
     Indication: PRODUCT USED FOR UNKNOWN INDICATION
     Dosage: 6 TIMES A DAY
     Route: 047
  2. SUSTAIN [Concomitant]
     Dosage: UNK

REACTIONS (4)
  - Eye discharge [Unknown]
  - Cataract [Unknown]
  - Lacrimation disorder [Unknown]
  - Visual impairment [Unknown]
